FAERS Safety Report 8442438-1 (Version None)
Quarter: 2012Q2

REPORT INFORMATION
  Report Type: 
  Country: None (occurrence: None)
  Receive Date: 20120615
  Receipt Date: 20120104
  Transmission Date: 20120825
  Serious: No
  Sender: FDA-Public Use
  Company Number: US-NOVEN-11US003836

PATIENT
  Sex: Female
  Weight: 22.676 kg

DRUGS (3)
  1. DAYTRANA [Suspect]
     Dosage: 10 MG, QD
     Route: 062
     Dates: start: 20111229, end: 20111229
  2. DAYTRANA [Suspect]
     Indication: ATTENTION DEFICIT/HYPERACTIVITY DISORDER
     Dosage: 10 MG, 1/4 PATCH X 3 DAYS
     Route: 062
     Dates: start: 20111217, end: 20111219
  3. DAYTRANA [Suspect]
     Dosage: 10 MG, 1/2 PATCH FOR SEVERAL DAYS
     Route: 062
     Dates: start: 20111220, end: 20111223

REACTIONS (7)
  - ABDOMINAL PAIN UPPER [None]
  - AFFECT LABILITY [None]
  - INSOMNIA [None]
  - ABDOMINAL DISCOMFORT [None]
  - DRUG DOSE OMISSION [None]
  - DRUG PRESCRIBING ERROR [None]
  - WRONG TECHNIQUE IN DRUG USAGE PROCESS [None]
